FAERS Safety Report 18221727 (Version 4)
Quarter: 2021Q2

REPORT INFORMATION
  Report Type: Spontaneous
  Country: US (occurrence: US)
  Receive Date: 20200902
  Receipt Date: 20210624
  Transmission Date: 20210717
  Serious: No
  Sender: FDA-Public Use
  Company Number: US-DECIPHERA PHARMACEUTICALS LLC-2020-US-000030

PATIENT
  Sex: Female

DRUGS (4)
  1. QINLOCK [Suspect]
     Active Substance: RIPRETINIB
     Dosage: 150 MILLIGRAM, QD
     Route: 048
  2. QINLOCK [Suspect]
     Active Substance: RIPRETINIB
     Dosage: 150 MILLIGRAM, QD
     Route: 048
     Dates: end: 20210429
  3. QINLOCK [Suspect]
     Active Substance: RIPRETINIB
     Indication: GASTROINTESTINAL STROMAL TUMOUR
     Dosage: 150 MILLIGRAM, QD
     Route: 048
     Dates: start: 20200619
  4. QINLOCK [Suspect]
     Active Substance: RIPRETINIB
     Dosage: 150 MILLIGRAM, QD
     Route: 048

REACTIONS (14)
  - Disease progression [Unknown]
  - Fall [Unknown]
  - Scab [Unknown]
  - Epistaxis [Unknown]
  - Seborrhoeic dermatitis [Unknown]
  - Alopecia [Unknown]
  - Rash pruritic [Unknown]
  - Product dose omission issue [Unknown]
  - Hallucination, visual [Unknown]
  - Visual impairment [Not Recovered/Not Resolved]
  - Rash [Unknown]
  - Somnolence [Unknown]
  - Blood bilirubin increased [Unknown]
  - Drug ineffective [Unknown]
